FAERS Safety Report 14894404 (Version 1)
Quarter: 2018Q2

REPORT INFORMATION
  Report Type: Spontaneous
  Country: BR (occurrence: BR)
  Receive Date: 20180515
  Receipt Date: 20180515
  Transmission Date: 20180711
  Serious: Yes (Death, Other)
  Sender: FDA-Public Use
  Company Number: BR-SUN PHARMACEUTICAL INDUSTRIES LTD-2018RR-172724

PATIENT
  Age: 29 Year
  Sex: Male

DRUGS (10)
  1. 5-FLUOROURACIL [Suspect]
     Active Substance: FLUOROURACIL
     Indication: METASTASES TO PERITONEUM
     Dosage: 12 CYCLES
     Route: 065
  2. DOCETAXEL. [Suspect]
     Active Substance: DOCETAXEL
     Indication: METASTASES TO PERITONEUM
     Dosage: 12 CYCLES
     Route: 065
  3. DOCETAXEL. [Suspect]
     Active Substance: DOCETAXEL
     Dosage: 30 MG/M2, ON DAY 1, 4 CYCLES
     Route: 033
  4. CISPLATIN. [Suspect]
     Active Substance: CISPLATIN
     Dosage: 30 MG/M2, ON DAY 1, 4 CYCLES
     Route: 033
  5. RAMUCIRUMAB [Suspect]
     Active Substance: RAMUCIRUMAB
     Indication: METASTASES TO PERITONEUM
     Dosage: 2 CYCLES
     Route: 065
  6. PACLITAXEL. [Suspect]
     Active Substance: PACLITAXEL
     Indication: METASTASES TO PERITONEUM
     Dosage: 2 CYCLES
     Route: 065
  7. CAPECITABINE. [Suspect]
     Active Substance: CAPECITABINE
     Indication: METASTASES TO PERITONEUM
     Dosage: 850 MG/M2, BID, FROM DAY 1 TO DAY 14, 3 CYCLES
     Route: 065
  8. CISPLATIN. [Suspect]
     Active Substance: CISPLATIN
     Dosage: 30 MG/M2, ON DAY 8, 4 CYCLES
     Route: 042
  9. DOCETAXEL. [Suspect]
     Active Substance: DOCETAXEL
     Dosage: 30 MG/M2, ON DAY 8, 4 CYCLES
     Route: 042
  10. CISPLATIN. [Suspect]
     Active Substance: CISPLATIN
     Indication: METASTASES TO PERITONEUM
     Dosage: 12 CYCLES
     Route: 065

REACTIONS (1)
  - Drug ineffective [Fatal]
